FAERS Safety Report 25970592 (Version 1)
Quarter: 2025Q4

REPORT INFORMATION
  Report Type: Spontaneous
  Country: US (occurrence: US)
  Receive Date: 20251028
  Receipt Date: 20251028
  Transmission Date: 20260117
  Serious: Yes (Hospitalization, Congenital Anomaly)
  Sender: JOHNSON AND JOHNSON
  Company Number: US-JNJFOC-20251028205

PATIENT
  Sex: Male
  Weight: 0.45 kg

DRUGS (1)
  1. REMICADE [Suspect]
     Active Substance: INFLIXIMAB
     Indication: Inflammatory bowel disease
     Route: 064
     Dates: start: 20120126

REACTIONS (5)
  - Premature baby [Unknown]
  - Hypertension [Unknown]
  - Heart disease congenital [Unknown]
  - Renal hypoplasia [Unknown]
  - Foetal exposure during pregnancy [Recovered/Resolved]

NARRATIVE: CASE EVENT DATE: 20250620
